FAERS Safety Report 20400733 (Version 2)
Quarter: 2022Q1

REPORT INFORMATION
  Report Type: Spontaneous
  Country: US (occurrence: US)
  Receive Date: 20220131
  Receipt Date: 20220201
  Transmission Date: 20220423
  Serious: No
  Sender: FDA-Public Use
  Company Number: US-ABBVIE-21K-163-4076666-00

PATIENT
  Sex: Female
  Weight: 62.652 kg

DRUGS (9)
  1. HUMIRA [Suspect]
     Active Substance: ADALIMUMAB
     Indication: Rheumatoid arthritis
     Route: 058
     Dates: start: 2009, end: 202101
  2. Leflunomide (NON-ABBVIE) [Concomitant]
     Indication: Rheumatoid arthritis
  3. Meloxicam (NON-ABBVIE) [Concomitant]
     Indication: Pain
  4. Atenolol (NON-ABBVIE) [Concomitant]
     Indication: Hypertension
  5. Irbesartan (NON-ABBVIE) [Concomitant]
     Indication: Hypertension
  6. Ezetimibe (NON-ABBVIE) [Concomitant]
     Indication: Blood cholesterol increased
  7. MODERNA COVID-19 VACCINE [Concomitant]
     Active Substance: ELASOMERAN
     Indication: COVID-19 immunisation
     Dosage: FIRST DOSE
     Route: 030
     Dates: start: 20210129, end: 20210129
  8. MODERNA COVID-19 VACCINE [Concomitant]
     Active Substance: ELASOMERAN
     Dosage: SECOND DOSE
     Route: 030
     Dates: start: 20210225, end: 20210225
  9. MODERNA COVID-19 VACCINE [Concomitant]
     Active Substance: ELASOMERAN
     Dosage: BOOSTER DOSE
     Route: 030
     Dates: start: 20210815, end: 20210815

REACTIONS (1)
  - Unevaluable event [Recovering/Resolving]
